FAERS Safety Report 25970304 (Version 1)
Quarter: 2025Q4

REPORT INFORMATION
  Report Type: Spontaneous
  Country: US (occurrence: US)
  Receive Date: 20251028
  Receipt Date: 20251028
  Transmission Date: 20260117
  Serious: Yes (Other)
  Sender: THE RITEDOSE CORP
  Company Number: US-THE RITEDOSE CORPORATION-2025RIT000178

PATIENT

DRUGS (2)
  1. IPRATROPIUM BROMIDE AND ALBUTEROL SULFATE [Suspect]
     Active Substance: ALBUTEROL SULFATE\IPRATROPIUM BROMIDE
     Indication: Pulmonary fibrosis
     Dosage: UNK, BID (MORNING AND AFTERNOON)
     Dates: start: 2025
  2. IPRATROPIUM BROMIDE AND ALBUTEROL SULFATE [Suspect]
     Active Substance: ALBUTEROL SULFATE\IPRATROPIUM BROMIDE
     Dosage: UNK, BID (MORNING AND AFTERNOON)
     Dates: start: 202507

REACTIONS (5)
  - Oxygen saturation decreased [Not Recovered/Not Resolved]
  - Heart rate increased [Unknown]
  - Product delivery mechanism issue [Unknown]
  - Product quality issue [Unknown]
  - Off label use [Unknown]

NARRATIVE: CASE EVENT DATE: 20250101
